FAERS Safety Report 16260186 (Version 1)
Quarter: 2019Q2

REPORT INFORMATION
  Report Type: Spontaneous
  Country: US (occurrence: US)
  Receive Date: 20190501
  Receipt Date: 20190501
  Transmission Date: 20190711
  Serious: No
  Sender: FDA-Public Use
  Company Number: US-PFIZER INC-2019183283

PATIENT
  Age: 80 Year
  Sex: Male
  Weight: 78 kg

DRUGS (4)
  1. GABAPENTIN. [Suspect]
     Active Substance: GABAPENTIN
     Dosage: 500 MG, 3X/DAY (100MG CAPSULES-5 CAPSULES TAKEN BY MOUTH THREE TIMES)
     Route: 048
     Dates: end: 20190423
  2. GABAPENTIN. [Suspect]
     Active Substance: GABAPENTIN
     Dosage: 300 MG, 3X/DAY (100MG CAPSULES-3 CAPSULES TAKEN BY MOUTH THREE TIMES DAILY)
     Route: 048
  3. GABAPENTIN. [Suspect]
     Active Substance: GABAPENTIN
     Dosage: 400 MG, 3X/DAY (100MG CAPSULES-4 CAPSULES TAKEN BY MOUTH THREE TIMES)
     Route: 048
  4. GABAPENTIN. [Suspect]
     Active Substance: GABAPENTIN
     Indication: TRIGEMINAL NERVE DISORDER
     Dosage: 200 MG, 3X/DAY (100MG CAPSULES-2 CAPSULES TAKEN BY MOUTH THREE TIMES DAILY)
     Route: 048

REACTIONS (1)
  - Drug ineffective for unapproved indication [Recovering/Resolving]
